FAERS Safety Report 6479666-0 (Version None)
Quarter: 2009Q4

REPORT INFORMATION
  Report Type: 
  Country: None (occurrence: None)
  Receive Date: 20091208
  Receipt Date: 20091202
  Transmission Date: 20100525
  Serious: Yes (Other)
  Sender: FDA-Public Use
  Company Number: JP-ASTRAZENECA-2009SE29977

PATIENT
  Age: 64 Year
  Sex: Female
  Weight: 48 kg

DRUGS (1)
  1. DIPRIVAN [Suspect]
     Indication: INDUCTION OF ANAESTHESIA
     Route: 042
     Dates: start: 20090723, end: 20090723

REACTIONS (2)
  - LARYNGEAL OEDEMA [None]
  - RASH [None]
